FAERS Safety Report 5731544-8 (Version None)
Quarter: 2008Q2

REPORT INFORMATION
  Report Type: 
  Country: None (occurrence: None)
  Receive Date: 20080506
  Receipt Date: 20080422
  Transmission Date: 20081010
  Serious: Yes (Hospitalization)
  Sender: FDA-Public Use
  Company Number: 2008BI003216

PATIENT
  Age: 53 Year
  Sex: Female

DRUGS (9)
  1. TYSABRI [Suspect]
     Indication: MULTIPLE SCLEROSIS
     Dosage: 300 MG, QM, IV
     Route: 042
     Dates: start: 20071031
  2. AMANTADINE HCL [Concomitant]
  3. SOTALOL HCL [Concomitant]
  4. ASPIRIN [Concomitant]
  5. FOSAMAX [Concomitant]
  6. DIAZEPAM [Concomitant]
  7. CLARITIN [Concomitant]
  8. LORTAB [Concomitant]
  9. AMBIEN [Concomitant]

REACTIONS (10)
  - ASTHENIA [None]
  - CONSTIPATION [None]
  - DIVERTICULAR PERFORATION [None]
  - FEMALE GENITAL TRACT FISTULA [None]
  - GASTROINTESTINAL STOMA COMPLICATION [None]
  - IMPAIRED HEALING [None]
  - MULTIPLE SCLEROSIS [None]
  - PELVIC ABSCESS [None]
  - PELVIC INFLAMMATORY DISEASE [None]
  - RECTAL HAEMORRHAGE [None]
